FAERS Safety Report 13268398 (Version 2)
Quarter: 2017Q2

REPORT INFORMATION
  Report Type: Report from Study
  Country: DE (occurrence: DE)
  Receive Date: 20170224
  Receipt Date: 20170623
  Transmission Date: 20170830
  Serious: Yes (Hospitalization)
  Sender: FDA-Public Use
  Company Number: DE-TEVA-741654ACC

PATIENT
  Weight: 63 kg

DRUGS (3)
  1. BENDAMUSTINE HYDROCHLORIDE. [Suspect]
     Active Substance: BENDAMUSTINE HYDROCHLORIDE
     Indication: PLASMA CELL MYELOMA
     Dosage: (CYCLE 1 TO 4, DAY 8 AND 9)
     Route: 042
     Dates: start: 20161107, end: 20170207
  2. DEXAMETHASONE. [Suspect]
     Active Substance: DEXAMETHASONE
     Indication: PLASMA CELL MYELOMA
     Dosage: (CYCLE 1 TO 4, DAY 8 AND 9)
     Route: 048
     Dates: start: 20161107, end: 20170207
  3. CARFILZOMIB [Suspect]
     Active Substance: CARFILZOMIB
     Indication: PLASMA CELL MYELOMA
     Dosage: (CYCLE 1 TO 4, DAY 8 AND 9)
     Route: 042
     Dates: start: 20161107, end: 20170207

REACTIONS (1)
  - Respiratory tract infection [Recovered/Resolved]

NARRATIVE: CASE EVENT DATE: 20170212
